FAERS Safety Report 18577761 (Version 1)
Quarter: 2020Q4

REPORT INFORMATION
  Report Type: Spontaneous
  Country: US (occurrence: US)
  Receive Date: 20201204
  Receipt Date: 20201204
  Transmission Date: 20210114
  Serious: No
  Sender: FDA-Public Use
  Company Number: US-SUN PHARMACEUTICAL INDUSTRIES LTD-2020R1-265207

PATIENT
  Sex: Female

DRUGS (1)
  1. CEQUA [Suspect]
     Active Substance: CYCLOSPORINE
     Indication: PRODUCT USED FOR UNKNOWN INDICATION
     Dosage: 1 DROP(IN EACH EYE)
     Route: 047

REACTIONS (6)
  - Fatigue [Unknown]
  - Headache [Recovered/Resolved]
  - Ocular hyperaemia [Unknown]
  - Eye pain [Recovered/Resolved]
  - Eye irritation [Unknown]
  - Product administration interrupted [Unknown]
